FAERS Safety Report 25774088 (Version 3)
Quarter: 2025Q3

REPORT INFORMATION
  Report Type: Spontaneous
  Country: CL (occurrence: CL)
  Receive Date: 20250908
  Receipt Date: 20250924
  Transmission Date: 20251021
  Serious: No
  Sender: PFIZER
  Company Number: CL-PFIZER INC-202500175231

PATIENT
  Age: 10 Year
  Sex: Male

DRUGS (1)
  1. GENOTROPIN [Suspect]
     Active Substance: SOMATROPIN

REACTIONS (2)
  - Device delivery system issue [Unknown]
  - Device physical property issue [Unknown]
